FAERS Safety Report 19812977 (Version 1)
Quarter: 2021Q3

REPORT INFORMATION
  Report Type: Spontaneous
  Country: US (occurrence: US)
  Receive Date: 20210909
  Receipt Date: 20210909
  Transmission Date: 20211014
  Serious: No
  Sender: FDA-Public Use
  Company Number: None

PATIENT
  Age: 46 Year
  Sex: Female
  Weight: 70.31 kg

DRUGS (2)
  1. TRINTILLIX [Concomitant]
     Dates: start: 20210816, end: 20210909
  2. VORTIOXETINE. [Suspect]
     Active Substance: VORTIOXETINE
     Indication: DEPRESSION
     Dates: start: 20210816, end: 20210909

REACTIONS (2)
  - Vomiting [None]
  - Nausea [None]
